FAERS Safety Report 4625656-X (Version None)
Quarter: 2005Q1

REPORT INFORMATION
  Report Type: 
  Country: None (occurrence: None)
  Receive Date: 20050330
  Receipt Date: 20050315
  Transmission Date: 20050727
  Serious: Yes (Death, Hospitalization, Other)
  Sender: FDA-Public Use
  Company Number: FR_050306063

PATIENT
  Age: 74 Year
  Sex: Female

DRUGS (1)
  1. GEMZAR [Suspect]
     Indication: ADENOCARCINOMA PANCREAS
     Dosage: 1 G/M2 OTHER
     Route: 050

REACTIONS (8)
  - ASTHENIA [None]
  - DYSPNOEA EXERTIONAL [None]
  - HAEMOLYTIC URAEMIC SYNDROME [None]
  - HEADACHE [None]
  - HYPERTENSION [None]
  - MALIGNANT NEOPLASM PROGRESSION [None]
  - OEDEMA PERIPHERAL [None]
  - WEIGHT INCREASED [None]
